FAERS Safety Report 17024892 (Version 1)
Quarter: 2019Q4

REPORT INFORMATION
  Report Type: Spontaneous
  Country: US (occurrence: US)
  Receive Date: 20191113
  Receipt Date: 20191113
  Transmission Date: 20200122
  Serious: Yes (Life-Threatening, Hospitalization, Disabling, Other)
  Sender: FDA-Public Use
  Company Number: US-009507513-1911USA003463

PATIENT
  Age: 21 Year
  Sex: Male

DRUGS (1)
  1. KEYTRUDA [Suspect]
     Active Substance: PEMBROLIZUMAB
     Indication: RENAL CANCER STAGE IV
     Dosage: 200 MILLIGRAM, EVERY 21 DAYS
     Route: 042
     Dates: start: 201501, end: 201706

REACTIONS (15)
  - Brain neoplasm [Recovered/Resolved]
  - Infection [Recovering/Resolving]
  - Fine motor skill dysfunction [Recovered/Resolved]
  - Brain neoplasm [Recovering/Resolving]
  - Speech disorder [Recovered/Resolved]
  - Eating disorder [Recovering/Resolving]
  - Headache [Recovered/Resolved]
  - Hemiplegia [Recovering/Resolving]
  - Fine motor skill dysfunction [Recovering/Resolving]
  - Confusional state [Recovering/Resolving]
  - Necrosis [Recovering/Resolving]
  - Seizure [Recovering/Resolving]
  - Amnesia [Recovered/Resolved]
  - Amnesia [Recovering/Resolving]
  - Aphasia [Recovering/Resolving]

NARRATIVE: CASE EVENT DATE: 2017
